FAERS Safety Report 4308531-X (Version None)
Quarter: 2004Q1

REPORT INFORMATION
  Report Type: 
  Country: None (occurrence: None)
  Receive Date: 20040225
  Receipt Date: 20030106
  Transmission Date: 20041129
  Serious: Yes (Disabling)
  Sender: FDA-Public Use
  Company Number: WAES 0301USA00399

PATIENT
  Age: 52 Year
  Sex: Male
  Weight: 112.0385 kg

DRUGS (1)
  1. ZOCOR [Suspect]
     Indication: BLOOD CHOLESTEROL INCREASED
     Dosage: 20 MG/DAILY/PO
     Route: 048
     Dates: start: 20010801, end: 20010901

REACTIONS (1)
  - CONSTIPATION [None]
